FAERS Safety Report 5334707-9 (Version None)
Quarter: 2007Q2

REPORT INFORMATION
  Report Type: 
  Country: None (occurrence: None)
  Receive Date: 20070525
  Receipt Date: 20070521
  Transmission Date: 20071010
  Serious: Yes (Death)
  Sender: FDA-Public Use
  Company Number: JP-BRACCO-BRO-011631

PATIENT
  Sex: Female

DRUGS (5)
  1. IOPAMIRON [Suspect]
     Indication: HEPATIC MASS
     Dosage: 2 ML/SEC
     Route: 042
     Dates: start: 20070403, end: 20070403
  2. IOPAMIRON [Suspect]
     Indication: COMPUTERISED TOMOGRAM
     Dosage: 2 ML/SEC
     Route: 042
     Dates: start: 20070403, end: 20070403
  3. NOVOLIN R [Concomitant]
     Route: 050
     Dates: start: 20061215, end: 20070402
  4. AMARYL [Concomitant]
     Route: 050
     Dates: start: 20060801, end: 20061224
  5. WARFARIN POTASSIUM [Concomitant]
     Route: 050
     Dates: start: 20061216, end: 20070319

REACTIONS (7)
  - CHEST DISCOMFORT [None]
  - FLUSHING [None]
  - PALLOR [None]
  - PULSE ABSENT [None]
  - SALIVARY HYPERSECRETION [None]
  - SNEEZING [None]
  - VENTRICULAR FIBRILLATION [None]
